FAERS Safety Report 8336698-5 (Version None)
Quarter: 2012Q2

REPORT INFORMATION
  Report Type: 
  Country: None (occurrence: None)
  Receive Date: 20120504
  Receipt Date: 20120426
  Transmission Date: 20120825
  Serious: Yes (Death, Other)
  Sender: FDA-Public Use
  Company Number: JP-BAYER-2012-041112

PATIENT
  Age: 79 Year
  Sex: Male
  Weight: 65 kg

DRUGS (10)
  1. LOXONIN [Concomitant]
     Dosage: DAILY DOSE 180 MG
     Route: 048
  2. LASIX [Concomitant]
     Dosage: DAILY DOSE 20 MG
     Route: 048
  3. OXYCONTIN [Concomitant]
     Dosage: DAILY DOSE 20 MG
     Route: 048
  4. OMEPRAZOLE [Concomitant]
     Dosage: DAILY DOSE 20 MG
     Route: 048
  5. AMARYL [Concomitant]
     Dosage: DAILY DOSE 1 MG
     Route: 048
  6. MAGMITT [Concomitant]
     Dosage: DAILY DOSE 1500 MG
     Route: 048
  7. NEXAVAR [Suspect]
     Indication: HEPATIC NEOPLASM MALIGNANT
     Dosage: DAILY DOSE 800 MG
     Route: 048
     Dates: start: 20110610, end: 20110629
  8. UREPEARL [Concomitant]
     Indication: PROPHYLAXIS
     Dosage: UNK
     Route: 061
  9. DEPAS [Concomitant]
     Dosage: DAILY DOSE .5 MG
     Route: 048
  10. TAMSULOSIN HCL [Concomitant]
     Dosage: DAILY DOSE .2 MG
     Route: 048
     Dates: start: 20110701

REACTIONS (5)
  - HYPERTENSION [None]
  - HEPATIC NEOPLASM MALIGNANT [None]
  - CLAVICLE FRACTURE [None]
  - HEPATIC FUNCTION ABNORMAL [None]
  - HYPONATRAEMIA [None]
